FAERS Safety Report 17046589 (Version 2)
Quarter: 2019Q4

REPORT INFORMATION
  Report Type: Spontaneous
  Country: NL (occurrence: NL)
  Receive Date: 20191119
  Receipt Date: 20191202
  Transmission Date: 20200122
  Serious: Yes (Hospitalization)
  Sender: FDA-Public Use
  Company Number: NL-TEVA-2019-NL-1138850

PATIENT
  Age: 78 Year
  Sex: Male

DRUGS (7)
  1. ROSUVASTATINE 10MG [Suspect]
     Active Substance: ROSUVASTATIN
     Dosage: 1DD4 (40 MILLIGRAM)
  2. EZETROL 10MG [Concomitant]
     Active Substance: EZETIMIBE
     Dosage: 1DD1 (10 MG PER DAY)
  3. METOPROLOL 25MG [Concomitant]
     Active Substance: METOPROLOL
     Dosage: 2DD1 (50 MILLIGRAM PER DAY)
  4. OMEPRAZOL 20MG [Concomitant]
     Dosage: 1DD1 (20 MG PER DAY)
  5. METOPROLOL 25MG [Concomitant]
     Active Substance: METOPROLOL
     Dosage: 2DD1 (50MG PER DAY)
  6. PERINDOPRIL 2MG [Concomitant]
     Active Substance: PERINDOPRIL
     Dosage: 1DD1 (2MG PER DAY)
  7. TICAGRELOR. [Suspect]
     Active Substance: TICAGRELOR
     Dosage: 2DD1 (180 MILLIGRAM PER DAY)
     Dates: start: 20130924

REACTIONS (2)
  - Rhabdomyolysis [Recovering/Resolving]
  - Acute kidney injury [Recovering/Resolving]

NARRATIVE: CASE EVENT DATE: 20131028
